FAERS Safety Report 10938703 (Version 2)
Quarter: 2015Q2

REPORT INFORMATION
  Report Type: Spontaneous
  Country: US (occurrence: US)
  Receive Date: 20150321
  Receipt Date: 20150525
  Transmission Date: 20150821
  Serious: No
  Sender: FDA-Public Use
  Company Number: US-JNJFOC-20140819213

PATIENT
  Sex: Female

DRUGS (1)
  1. STELARA [Suspect]
     Active Substance: USTEKINUMAB
     Indication: PSORIATIC ARTHROPATHY
     Dosage: 45 MG AND 4 WEEKS LATER ONCE EVERY 12 WEEKS
     Route: 058
     Dates: start: 20140828

REACTIONS (2)
  - Drug dose omission [Recovered/Resolved]
  - Incorrect product storage [Unknown]
